FAERS Safety Report 6749949-5 (Version None)
Quarter: 2010Q2

REPORT INFORMATION
  Report Type: 
  Country: None (occurrence: None)
  Receive Date: 20100601
  Receipt Date: 20100518
  Transmission Date: 20101027
  Serious: Yes (Other)
  Sender: FDA-Public Use
  Company Number: US-ELI_LILLY_AND_COMPANY-US201005005187

PATIENT
  Sex: Female

DRUGS (11)
  1. EVISTA [Suspect]
     Dates: start: 20100407
  2. AZITHROMYCIN [Concomitant]
  3. FLUCONAZOLE [Concomitant]
  4. PREMARIN [Concomitant]
  5. FLURAZEPAM [Concomitant]
  6. FLUTICASONE PROPIONATE [Concomitant]
  7. FELODIPINE [Concomitant]
  8. POTASSIUM [Concomitant]
  9. LEVOXYL [Concomitant]
  10. CALCITONIN [Concomitant]
  11. VITAMIN TAB [Concomitant]

REACTIONS (3)
  - ILEOSTOMY [None]
  - INTESTINAL RESECTION [None]
  - MALABSORPTION [None]
